FAERS Safety Report 22241715 (Version 4)
Quarter: 2023Q2

REPORT INFORMATION
  Report Type: Report from Study
  Country: CN (occurrence: CN)
  Receive Date: 20230421
  Receipt Date: 20230623
  Transmission Date: 20230722
  Serious: Yes (Other)
  Sender: FDA-Public Use
  Company Number: CN-GILEAD-2022-0583076

PATIENT
  Age: 62 Year
  Sex: Male

DRUGS (5)
  1. AXICABTAGENE CILOLEUCEL [Suspect]
     Active Substance: AXICABTAGENE CILOLEUCEL
     Indication: Non-Hodgkin^s lymphoma
     Dosage: 2.0*10^6 (NUMBER OF CAR-T CELLS)/KG
     Route: 042
     Dates: start: 20211015, end: 20211015
  2. CYCLOPHOSPHAMIDE [Concomitant]
     Active Substance: CYCLOPHOSPHAMIDE
     Indication: Lymphodepletion
     Dosage: 0.87 G
     Route: 041
     Dates: start: 20211010, end: 20211012
  3. FLUDARABINE PHOSPHATE [Concomitant]
     Active Substance: FLUDARABINE PHOSPHATE
     Indication: Lymphodepletion
     Dosage: 50 MG
     Route: 041
     Dates: start: 20211010, end: 20211012
  4. BUDESONIDE [Concomitant]
     Active Substance: BUDESONIDE
     Indication: Prophylaxis
     Dosage: 2 MG
     Dates: start: 20220224
  5. BUDESONIDE [Concomitant]
     Active Substance: BUDESONIDE
     Indication: Respiratory tract inflammation
     Dosage: 2 MG
     Dates: start: 20220225, end: 20220228

REACTIONS (14)
  - Haematological infection [Recovered/Resolved]
  - Cytokine release syndrome [Recovered/Resolved]
  - Lymphocyte count decreased [Not Recovered/Not Resolved]
  - Globulins decreased [Recovered/Resolved]
  - T-lymphocyte count decreased [Not Recovered/Not Resolved]
  - B-lymphocyte count decreased [Not Recovered/Not Resolved]
  - White blood cell count decreased [Not Recovered/Not Resolved]
  - Immunoglobulins decreased [Not Recovered/Not Resolved]
  - Anaemia [Not Recovered/Not Resolved]
  - Dyspnoea [Not Recovered/Not Resolved]
  - Sinus tachycardia [Recovered/Resolved]
  - Hypoalbuminaemia [Recovered/Resolved]
  - Hyponatraemia [Not Recovered/Not Resolved]
  - Pyrexia [Recovered/Resolved]

NARRATIVE: CASE EVENT DATE: 20211016
